FAERS Safety Report 7771451-2 (Version None)
Quarter: 2011Q3

REPORT INFORMATION
  Report Type: 
  Country: None (occurrence: None)
  Receive Date: 20110922
  Receipt Date: 20110718
  Transmission Date: 20111222
  Serious: Yes (Hospitalization)
  Sender: FDA-Public Use
  Company Number: US-ASTRAZENECA-2011SE43652

PATIENT
  Age: 69 Year
  Sex: Male

DRUGS (10)
  1. QUETIAPINE [Suspect]
     Indication: AGITATION
     Route: 048
     Dates: start: 20110617, end: 20110620
  2. DONEPEZIL HCL [Concomitant]
  3. LORAZEPAM [Concomitant]
  4. BAPINEUZUMAB [Suspect]
     Dosage: BLINDED DOSE
     Route: 051
     Dates: start: 20100621, end: 20100621
  5. BAPINEUZUMAB [Suspect]
     Dosage: BLINDED DOSE
     Route: 051
     Dates: start: 20100924, end: 20100924
  6. BAPINEUZUMAB [Suspect]
     Dosage: BLINDED DOSE
     Route: 051
     Dates: start: 20110501, end: 20110501
  7. MEMANTINE [Concomitant]
  8. BAPINEUZUMAB [Suspect]
     Indication: DEMENTIA ALZHEIMER'S TYPE
     Dosage: BLINDED DOSE
     Route: 051
     Dates: start: 20100322, end: 20100322
  9. BAPINEUZUMAB [Suspect]
     Dosage: BLINDED DOSE
     Route: 065
     Dates: start: 20110102, end: 20110102
  10. ESCITALOPRAM [Concomitant]

REACTIONS (1)
  - CONVULSION [None]
